FAERS Safety Report 9558517 (Version 1)
Quarter: 2013Q3

REPORT INFORMATION
  Report Type: Spontaneous
  Country: US (occurrence: US)
  Receive Date: 20130926
  Receipt Date: 20130926
  Transmission Date: 20140515
  Serious: No
  Sender: FDA-Public Use
  Company Number: US-BIOGENIDEC-2013BI044036

PATIENT
  Sex: Female

DRUGS (1)
  1. TECFIDERA [Suspect]
     Indication: MULTIPLE SCLEROSIS
     Route: 048
     Dates: start: 201304, end: 201304

REACTIONS (6)
  - Flushing [Unknown]
  - Diarrhoea [Unknown]
  - Dysarthria [Unknown]
  - Dysstasia [Unknown]
  - Mobility decreased [Unknown]
  - Faecal incontinence [Unknown]
